FAERS Safety Report 6433845-7 (Version None)
Quarter: 2009Q4

REPORT INFORMATION
  Report Type: 
  Country: None (occurrence: None)
  Receive Date: 20091106
  Receipt Date: 20091106
  Transmission Date: 20100525
  Serious: Yes (Hospitalization)
  Sender: FDA-Public Use
  Company Number: None

PATIENT
  Age: 24 Year
  Sex: Male
  Weight: 65.91 kg

DRUGS (1)
  1. ACETAMINOPHEN/CHLORPHENIRAMINE [Suspect]

REACTIONS (4)
  - HALLUCINATIONS, MIXED [None]
  - INCORRECT DOSE ADMINISTERED [None]
  - MENTAL STATUS CHANGES [None]
  - TACHYCARDIA [None]
